FAERS Safety Report 19353049 (Version 2)
Quarter: 2022Q3

REPORT INFORMATION
  Report Type: Report from Study
  Country: IN (occurrence: IN)
  Receive Date: 20210601
  Receipt Date: 20220830
  Transmission Date: 20221026
  Serious: Yes (Death)
  Sender: FDA-Public Use
  Company Number: IN-NOVARTISPH-NVSC2021IN123347

PATIENT
  Age: 47 Year
  Sex: Male

DRUGS (2)
  1. VOTRIENT [Suspect]
     Active Substance: PAZOPANIB HYDROCHLORIDE
     Indication: Renal cell carcinoma
     Dosage: 800 MG, QD
     Route: 065
     Dates: start: 20201008, end: 202106
  2. VOTRIENT [Suspect]
     Active Substance: PAZOPANIB HYDROCHLORIDE
     Dosage: 800 MG, QD
     Route: 048
     Dates: start: 20201022, end: 20210416

REACTIONS (1)
  - Death [Fatal]

NARRATIVE: CASE EVENT DATE: 20210601
